FAERS Safety Report 18758328 (Version 1)
Quarter: 2021Q1

REPORT INFORMATION
  Report Type: Other
  Country: CN (occurrence: CN)
  Receive Date: 20210120
  Receipt Date: 20210120
  Transmission Date: 20210419
  Serious: Yes (Other)
  Sender: FDA-Public Use
  Company Number: CN-ROCHE-2748873

PATIENT

DRUGS (3)
  1. BEVACIZUMAB. [Suspect]
     Active Substance: BEVACIZUMAB
     Indication: NON-SMALL CELL LUNG CANCER
     Dosage: 21 DAYS IS 1 COURSE OF TREATMENT, 2 CONSECUTIVE COURSES OF TREATMENT
     Route: 065
  2. CARBOPLATIN. [Suspect]
     Active Substance: CARBOPLATIN
     Indication: NON-SMALL CELL LUNG CANCER
     Dosage: 21 DAYS IS 1 COURSE OF TREATMENT, 2 CONSECUTIVE COURSES OF TREATMENT
     Route: 065
  3. PACLITAXEL. [Suspect]
     Active Substance: PACLITAXEL
     Indication: NON-SMALL CELL LUNG CANCER
     Dosage: 21 DAYS IS 1 COURSE OF TREATMENT, 2 CONSECUTIVE COURSES OF TREATMENT
     Route: 065

REACTIONS (2)
  - Alopecia [Unknown]
  - White blood cell count decreased [Unknown]
